FAERS Safety Report 15386725 (Version 2)
Quarter: 2018Q4

REPORT INFORMATION
  Report Type: Spontaneous
  Country: ES (occurrence: ES)
  Receive Date: 20180914
  Receipt Date: 20181221
  Transmission Date: 20190204
  Serious: Yes (Hospitalization, Other)
  Sender: FDA-Public Use
  Company Number: PHHY2018ES049784

PATIENT
  Age: 39 Year
  Sex: Male

DRUGS (11)
  1. TENOFOVIR DISOPROXIL [Interacting]
     Active Substance: TENOFOVIR DISOPROXIL
     Indication: HIV INFECTION
     Dosage: UNK
     Route: 065
  2. ATRIPLA [Interacting]
     Active Substance: EFAVIRENZ\EMTRICITABINE\TENOFOVIR DISOPROXIL FUMARATE
     Dosage: UNK
     Route: 048
  3. ATRIPLA [Interacting]
     Active Substance: EFAVIRENZ\EMTRICITABINE\TENOFOVIR DISOPROXIL FUMARATE
     Indication: HIV INFECTION
     Route: 065
  4. TICAGRELOR. [Interacting]
     Active Substance: TICAGRELOR
     Indication: ANTIPLATELET THERAPY
     Route: 065
  5. ATORVASTATIN [Suspect]
     Active Substance: ATORVASTATIN
     Indication: PRODUCT USED FOR UNKNOWN INDICATION
     Dosage: UNK
     Route: 065
  6. BISOPROLOL [Concomitant]
     Active Substance: BISOPROLOL
     Indication: PRODUCT USED FOR UNKNOWN INDICATION
     Dosage: UNK
     Route: 065
  7. PANTOPRAZOLE [Concomitant]
     Active Substance: PANTOPRAZOLE
     Indication: PRODUCT USED FOR UNKNOWN INDICATION
     Dosage: UNK
     Route: 065
  8. ACETYLSALICYLIC ACID [Interacting]
     Active Substance: ASPIRIN
     Indication: ANTIPLATELET THERAPY
     Route: 065
  9. EFAVIRENZ. [Interacting]
     Active Substance: EFAVIRENZ
     Indication: HIV INFECTION
     Dosage: UNK
     Route: 048
  10. EMTRICITABINE [Interacting]
     Active Substance: EMTRICITABINE
     Indication: HIV INFECTION
     Dosage: UNK
     Route: 065
  11. ENALAPRIL [Concomitant]
     Active Substance: ENALAPRIL
     Indication: PRODUCT USED FOR UNKNOWN INDICATION
     Dosage: UNK
     Route: 065

REACTIONS (5)
  - Drug interaction [Unknown]
  - Acute coronary syndrome [Recovered/Resolved]
  - Chest pain [Recovered/Resolved]
  - Vascular stent thrombosis [Recovered/Resolved]
  - Acute myocardial infarction [Recovered/Resolved]

NARRATIVE: CASE EVENT DATE: 2014
